FAERS Safety Report 6677633-5 (Version None)
Quarter: 2010Q2

REPORT INFORMATION
  Report Type: 
  Country: None (occurrence: None)
  Receive Date: 20100412
  Receipt Date: 20100223
  Transmission Date: 20101027
  Serious: No
  Sender: FDA-Public Use
  Company Number: US-ALEXION-A201000215

PATIENT
  Sex: Female

DRUGS (8)
  1. SOLIRIS [Suspect]
     Indication: PAROXYSMAL NOCTURNAL HAEMOGLOBINURIA
     Dosage: 600 MG, QW X4
     Route: 042
     Dates: start: 20091202
  2. SOLIRIS [Suspect]
     Dosage: 900 MG, Q2W
     Route: 042
     Dates: start: 20091230
  3. CAPECITABINE [Concomitant]
  4. BENTYL [Concomitant]
     Dosage: 20 MG, Q6H, PRN
     Route: 048
  5. ZOFRAN [Concomitant]
     Dosage: 8 MG, QD
     Route: 048
  6. CALCIUM W/VITAMIN D                /00188401/ [Concomitant]
     Dosage: 250/125 MG, QD
     Route: 048
  7. PRILOSEC [Concomitant]
     Dosage: 20 MG, QD
     Route: 048
  8. METOPROLOL TARTRATE [Concomitant]
     Dosage: 25 MG, BID
     Route: 048

REACTIONS (3)
  - DIZZINESS [None]
  - FATIGUE [None]
  - HEADACHE [None]
